FAERS Safety Report 17915722 (Version 1)
Quarter: 2020Q2

REPORT INFORMATION
  Report Type: Report from Study
  Country: US (occurrence: US)
  Receive Date: 20200619
  Receipt Date: 20200619
  Transmission Date: 20200714
  Serious: Yes (Hospitalization, Other)
  Sender: FDA-Public Use
  Company Number: US-BRISTOL-MYERS SQUIBB COMPANY-BMS-2020-047984

PATIENT
  Age: 73 Year
  Sex: Female
  Weight: 67.4 kg

DRUGS (1)
  1. NIVOLUMAB [Suspect]
     Active Substance: NIVOLUMAB
     Indication: MALIGNANT MELANOMA
     Dosage: UNK
     Route: 065
     Dates: start: 20190327, end: 20191120

REACTIONS (3)
  - Gastroenteritis viral [Unknown]
  - Bile duct obstruction [Unknown]
  - Pancreatic duct obstruction [Unknown]

NARRATIVE: CASE EVENT DATE: 20191213
